FAERS Safety Report 9133203 (Version 1)
Quarter: 2013Q1

REPORT INFORMATION
  Report Type: Spontaneous
  Country: US (occurrence: US)
  Receive Date: 20130116
  Receipt Date: 20130116
  Transmission Date: 20140127
  Serious: Yes (Other)
  Sender: FDA-Public Use
  Company Number: US-RB-048227-13

PATIENT
  Age: 77 Year
  Sex: Female

DRUGS (2)
  1. MUCINEX [Suspect]
     Route: 048
     Dates: start: 20130101
  2. MUCINEX [Suspect]
     Indication: COUGH
     Route: 048
     Dates: start: 20130102

REACTIONS (5)
  - Epistaxis [Recovered/Resolved]
  - Decreased appetite [Recovered/Resolved]
  - Headache [Recovered/Resolved]
  - Diarrhoea [Recovered/Resolved]
  - Drug ineffective [Not Recovered/Not Resolved]
